FAERS Safety Report 15074799 (Version 1)
Quarter: 2018Q3

REPORT INFORMATION
  Report Type: Report from Study
  Country: US (occurrence: US)
  Receive Date: 20180627
  Receipt Date: 20180627
  Transmission Date: 20181010
  Serious: No
  Sender: FDA-Public Use
  Company Number: US-SAOL THERAPEUTICS-2017SAO01096

PATIENT
  Age: 66 Year
  Sex: Female
  Weight: 52.61 kg

DRUGS (16)
  1. CLONIDINE. [Suspect]
     Active Substance: CLONIDINE
     Dosage: 74.95 ?G, \DAY
     Route: 037
     Dates: start: 20140127
  2. COMPOUNDED BACLOFEN [Suspect]
     Active Substance: BACLOFEN
     Dosage: 108.88 ?G, \DAY
     Route: 037
     Dates: start: 20140127
  3. COMPOUNDED BACLOFEN [Suspect]
     Active Substance: BACLOFEN
     Dosage: 87.44 ?G, \DAY
     Route: 037
     Dates: start: 20131211, end: 20140127
  4. BUPIVACAINE. [Suspect]
     Active Substance: BUPIVACAINE
     Dosage: 14.989 MG, \DAY
     Route: 037
     Dates: start: 20140127
  5. COMPOUNDED BACLOFEN [Suspect]
     Active Substance: BACLOFEN
     Dosage: 121.20 ?G, \DAY
     Route: 037
     Dates: start: 20131211, end: 20140127
  6. BUPIVACAINE. [Suspect]
     Active Substance: BUPIVACAINE
     Dosage: 24.240 UNK, \DAY
     Dates: start: 20131211, end: 20140127
  7. DILAUDID [Suspect]
     Active Substance: HYDROMORPHONE HYDROCHLORIDE
     Dosage: 2.4240 MG, \DAY
     Route: 037
     Dates: start: 20131211, end: 20140127
  8. DILAUDID [Suspect]
     Active Substance: HYDROMORPHONE HYDROCHLORIDE
     Dosage: 2.1776 MG, \DAY
     Route: 037
     Dates: start: 20140127
  9. BUPIVACAINE. [Suspect]
     Active Substance: BUPIVACAINE
     Dosage: 21.776 MG, \DAY
     Route: 037
     Dates: start: 20140127
  10. CLONIDINE. [Suspect]
     Active Substance: CLONIDINE
     Dosage: 87.44 ?G, \DAY
     Route: 037
     Dates: start: 20131211, end: 20140127
  11. CLONIDINE. [Suspect]
     Active Substance: CLONIDINE
     Dosage: 108.88 ?G, \DAY
     Route: 037
     Dates: start: 20140127
  12. DILAUDID [Suspect]
     Active Substance: HYDROMORPHONE HYDROCHLORIDE
     Dosage: 1.748 MG, \DAY
     Route: 037
     Dates: start: 20131211, end: 20140127
  13. DILAUDID [Suspect]
     Active Substance: HYDROMORPHONE HYDROCHLORIDE
     Dosage: 1.4989 MG, \DAY
     Route: 037
     Dates: start: 20170127
  14. COMPOUNDED BACLOFEN [Suspect]
     Active Substance: BACLOFEN
     Dosage: 74.95 ?G, \DAY
     Route: 037
     Dates: start: 20140127
  15. BUPIVACAINE. [Suspect]
     Active Substance: BUPIVACAINE
     Dosage: 17.488 MG, \DAY
     Route: 037
     Dates: start: 20131211, end: 20140127
  16. CLONIDINE. [Suspect]
     Active Substance: CLONIDINE
     Dosage: 121.20 ?G, \DAY
     Route: 037
     Dates: start: 20131211, end: 20140127

REACTIONS (3)
  - Overdose [Recovered/Resolved]
  - Hypoaesthesia [Recovered/Resolved]
  - Sedation [Recovered/Resolved]

NARRATIVE: CASE EVENT DATE: 20140127
